FAERS Safety Report 7809580-7 (Version None)
Quarter: 2011Q4

REPORT INFORMATION
  Report Type: 
  Country: None (occurrence: None)
  Receive Date: 20111012
  Receipt Date: 20111012
  Transmission Date: 20120403
  Serious: Yes (Hospitalization, Other)
  Sender: FDA-Public Use
  Company Number: PHHO2009US06821

PATIENT
  Sex: Female
  Weight: 68 kg

DRUGS (18)
  1. NARINE REPETABS [Concomitant]
  2. VIACTIV [Concomitant]
  3. CALCIUM CARBONATE [Concomitant]
  4. MULTI-VITAMINS [Concomitant]
  5. GILENYA [Suspect]
     Dosage: 0.5 MG, UNK
     Route: 048
     Dates: start: 20090605, end: 20090726
  6. GUAIFENESIN [Concomitant]
  7. PROZAC [Concomitant]
  8. BUPROPION HCL [Concomitant]
     Indication: DEPRESSION
     Dosage: UNK
     Dates: start: 20000101, end: 20090602
  9. ASCORBIC ACID [Concomitant]
  10. BUPROPION HYDROCHLORIDE [Concomitant]
  11. CYANOCOBALAMIN [Concomitant]
  12. GILENYA [Suspect]
     Indication: MULTIPLE SCLEROSIS
     Dosage: 0.5 MG, UNK
     Route: 048
     Dates: start: 20081103, end: 20090531
  13. NAPROXEN SODIUM [Concomitant]
  14. MEDROXYPROGESTERONE [Concomitant]
  15. GILENYA [Suspect]
     Dosage: 0.5 MG, UNK
     Dates: start: 20090601, end: 20090604
  16. BISACODYL [Concomitant]
  17. ACETAMINOPHEN [Concomitant]
  18. AMANTADINE HCL [Concomitant]
     Indication: FATIGUE

REACTIONS (20)
  - BODY TEMPERATURE INCREASED [None]
  - ENDOTRACHEAL INTUBATION [None]
  - EYE DISORDER [None]
  - CONFUSIONAL STATE [None]
  - MULTIPLE SCLEROSIS [None]
  - ASTHENIA [None]
  - TONGUE BITING [None]
  - ESCHERICHIA INFECTION [None]
  - STATUS EPILEPTICUS [None]
  - ANXIETY [None]
  - URINARY TRACT INFECTION [None]
  - LOSS OF CONSCIOUSNESS [None]
  - STARING [None]
  - URINARY INCONTINENCE [None]
  - LETHARGY [None]
  - ELECTROENCEPHALOGRAM ABNORMAL [None]
  - DIZZINESS [None]
  - AMNESIA [None]
  - TONIC CLONIC MOVEMENTS [None]
  - NUCLEAR MAGNETIC RESONANCE IMAGING BRAIN ABNORMAL [None]
